FAERS Safety Report 11910355 (Version 1)
Quarter: 2016Q1

REPORT INFORMATION
  Report Type: Spontaneous
  Country: US (occurrence: None)
  Receive Date: 20160111
  Receipt Date: 20160111
  Transmission Date: 20160526
  Serious: Yes (Hospitalization)
  Sender: FDA-Public Use
  Company Number: None

PATIENT
  Age: 53 Year
  Sex: Male
  Weight: 55.9 kg

DRUGS (1)
  1. AVASTIN [Suspect]
     Active Substance: BEVACIZUMAB

REACTIONS (4)
  - Hyperbilirubinaemia [None]
  - Microangiopathic haemolytic anaemia [None]
  - Acute kidney injury [None]
  - Thrombocytopenia [None]

NARRATIVE: CASE EVENT DATE: 20151222
